FAERS Safety Report 18809409 (Version 1)
Quarter: 2021Q1

REPORT INFORMATION
  Report Type: Spontaneous
  Country: CA (occurrence: CA)
  Receive Date: 20210129
  Receipt Date: 20210129
  Transmission Date: 20210419
  Serious: Yes (Death, Other)
  Sender: FDA-Public Use
  Company Number: CA-PURDUE-USA-2020-0201279

PATIENT
  Age: 49 Year
  Sex: Female

DRUGS (2)
  1. OXY IR [Suspect]
     Active Substance: OXYCODONE HYDROCHLORIDE
     Indication: BACK PAIN
     Dosage: 90 MG, UNK
     Route: 048
  2. OXYCONTIN [Suspect]
     Active Substance: OXYCODONE HYDROCHLORIDE
     Indication: BACK PAIN
     Dosage: UNK MG, UNK
     Route: 048
     Dates: start: 20040704, end: 20081024

REACTIONS (13)
  - Drug dependence [Unknown]
  - Agoraphobia [Unknown]
  - Dizziness [Unknown]
  - Rash [Unknown]
  - Pruritus [Unknown]
  - Withdrawal syndrome [Unknown]
  - Nausea [Unknown]
  - Completed suicide [Fatal]
  - Somnolence [Unknown]
  - Constipation [Unknown]
  - Anxiety [Unknown]
  - Weight increased [Unknown]
  - Mood swings [Unknown]

NARRATIVE: CASE EVENT DATE: 20081024
